FAERS Safety Report 18532139 (Version 2)
Quarter: 2021Q1

REPORT INFORMATION
  Report Type: Spontaneous
  Country: US (occurrence: US)
  Receive Date: 20201123
  Receipt Date: 20210122
  Transmission Date: 20210419
  Serious: No
  Sender: FDA-Public Use
  Company Number: US-009507513-2010USA010536

PATIENT
  Sex: Female

DRUGS (10)
  1. DECADRON [Suspect]
     Active Substance: DEXAMETHASONE
     Indication: HYPERSENSITIVITY
     Dosage: UNK, QPM
  2. BENADRYL [Suspect]
     Active Substance: DIPHENHYDRAMINE HYDROCHLORIDE
     Dosage: UNK, QAM
     Dates: start: 202002
  3. BRAFTOVI [Suspect]
     Active Substance: ENCORAFENIB
     Dosage: 300 MG IN THE MORNING
     Dates: start: 202002
  4. MEKTOVI [Suspect]
     Active Substance: BINIMETINIB
     Dosage: 45MG,  IN THE MORNING
     Dates: start: 202002
  5. KEPPRA [Concomitant]
     Active Substance: LEVETIRACETAM
     Indication: SEIZURE
  6. BENADRYL [Suspect]
     Active Substance: DIPHENHYDRAMINE HYDROCHLORIDE
     Indication: HYPERSENSITIVITY
     Dosage: UNK, QPM
  7. DECADRON [Suspect]
     Active Substance: DEXAMETHASONE
     Dosage: UNK, QAM
     Dates: start: 202002
  8. MEKTOVI [Suspect]
     Active Substance: BINIMETINIB
     Dosage: 45MG,  IN THE EVENING
  9. BRAFTOVI [Suspect]
     Active Substance: ENCORAFENIB
     Dosage: 300 MG IN THE EVENING
  10. DILANTIN [Concomitant]
     Active Substance: PHENYTOIN
     Indication: SEIZURE

REACTIONS (3)
  - Memory impairment [Unknown]
  - Fatigue [Unknown]
  - Rash [Unknown]
